FAERS Safety Report 14823866 (Version 1)
Quarter: 2018Q2

REPORT INFORMATION
  Report Type: Spontaneous
  Country: DE (occurrence: DE)
  Receive Date: 20180428
  Receipt Date: 20180428
  Transmission Date: 20180711
  Serious: Yes (Hospitalization)
  Sender: FDA-Public Use
  Company Number: DE-CONCORDIA PHARMACEUTICALS INC.-E2B_00011445

PATIENT
  Age: 85 Year
  Sex: Male

DRUGS (11)
  1. BUDESONID [Suspect]
     Active Substance: BUDESONIDE
     Dosage: 0.5 MG, 1-0-1-0
  2. PANTOPRAZOL [Concomitant]
     Active Substance: PANTOPRAZOLE SODIUM
     Dosage: 40 MG, 1-0-1-0
  3. CITALOPRAM [Concomitant]
     Active Substance: CITALOPRAM HYDROBROMIDE
     Dosage: 10 MG, 1-0-0-0
  4. FUROSEMID [Concomitant]
     Active Substance: FUROSEMIDE
     Dosage: 40 MG, 1-1-0-0
  5. APIXABAN [Concomitant]
     Active Substance: APIXABAN
     Dosage: 2.5 MG, 1-0-1-0
  6. SALBUTAMOL [Concomitant]
     Active Substance: ALBUTEROL
     Dosage: NK
  7. PREDNISOLONE. [Suspect]
     Active Substance: PREDNISOLONE
     Dosage: 10 MG, NK
  8. METOPROLOL. [Suspect]
     Active Substance: METOPROLOL
     Dosage: 23.75 MG, 1-0-0-1
  9. KALIUM [Concomitant]
     Active Substance: POTASSIUM CHLORIDE
     Dosage: 1-0-0-0
  10. IPRATROPIUMBROMID [Concomitant]
     Active Substance: IPRATROPIUM BROMIDE
     Dosage: NK
  11. XIPAMID [Concomitant]
     Active Substance: XIPAMIDE
     Dosage: 10 MG, 1-0-0-0

REACTIONS (3)
  - Abdominal pain lower [Unknown]
  - Drug prescribing error [Unknown]
  - Dyspnoea [Unknown]
